FAERS Safety Report 24561600 (Version 2)
Quarter: 2025Q1

REPORT INFORMATION
  Report Type: Report from Study
  Country: DE (occurrence: DE)
  Receive Date: 20241029
  Receipt Date: 20250106
  Transmission Date: 20250409
  Serious: Yes (Hospitalization, Other)
  Sender: MYLAN
  Company Number: DE-BRISTOL-MYERS SQUIBB COMPANY-2024-161174

PATIENT
  Age: 44 Year
  Sex: Female

DRUGS (2)
  1. METHOTREXATE [Suspect]
     Active Substance: METHOTREXATE
     Indication: Product used for unknown indication
     Dosage: 7.5 MILLIGRAM, QW
     Route: 065
  2. ORENCIA [Suspect]
     Active Substance: ABATACEPT
     Indication: Rheumatic disorder
     Dosage: 125 MILLIGRAM, QW
     Route: 065

REACTIONS (7)
  - Rheumatoid arthritis [Recovered/Resolved]
  - Skin fibrosis [Recovered/Resolved]
  - Skin disorder [Recovered/Resolved]
  - Anal rash [Unknown]
  - Allergy to surgical sutures [Unknown]
  - Impaired healing [Unknown]
  - Alopecia [Unknown]

NARRATIVE: CASE EVENT DATE: 20230601
